FAERS Safety Report 9423665 (Version 1)
Quarter: 2013Q3

REPORT INFORMATION
  Report Type: Spontaneous
  Country: US (occurrence: US)
  Receive Date: 20130726
  Receipt Date: 20130726
  Transmission Date: 20140515
  Serious: No
  Sender: FDA-Public Use
  Company Number: US-TEVA-420084USA

PATIENT
  Age: 29 Year
  Sex: Female
  Weight: 57.66 kg

DRUGS (7)
  1. PARAGARD 380A [Suspect]
     Indication: CONTRACEPTION
     Route: 015
     Dates: start: 20121022, end: 20130716
  2. PRENATAL VITAMINS [Concomitant]
  3. FISH OIL [Concomitant]
  4. SYNTHROID [Concomitant]
     Indication: HYPOTHYROIDISM
  5. ZOLOFT [Concomitant]
     Indication: DEPRESSION
  6. VALTREX [Concomitant]
     Indication: GENITAL HERPES
  7. PROBIOTICA [Concomitant]

REACTIONS (1)
  - Device expulsion [Recovered/Resolved]
